FAERS Safety Report 17755729 (Version 2)
Quarter: 2021Q1

REPORT INFORMATION
  Report Type: Spontaneous
  Country: US (occurrence: US)
  Receive Date: 20200507
  Receipt Date: 20210222
  Transmission Date: 20210419
  Serious: No
  Sender: FDA-Public Use
  Company Number: US-SA-2020SA116096

PATIENT
  Age: 28 Year
  Sex: Female

DRUGS (1)
  1. DUPIXENT [Suspect]
     Active Substance: DUPILUMAB
     Indication: PRODUCT USE IN UNAPPROVED INDICATION
     Dosage: 300 MG, QOW
     Route: 058

REACTIONS (6)
  - Product dose omission issue [Unknown]
  - Dry skin [Unknown]
  - Rash papular [Unknown]
  - Chest pain [Unknown]
  - Visual impairment [Unknown]
  - Rash [Unknown]

NARRATIVE: CASE EVENT DATE: 20200101
